FAERS Safety Report 20611285 (Version 11)
Quarter: 2022Q4

REPORT INFORMATION
  Report Type: Report from Study
  Country: CN (occurrence: CN)
  Receive Date: 20220318
  Receipt Date: 20221227
  Transmission Date: 20230113
  Serious: Yes (Hospitalization, Other)
  Sender: FDA-Public Use
  Company Number: CN-TAKEDA-2022TUS017777

PATIENT
  Age: 57 Year
  Sex: Female
  Weight: 47 kg

DRUGS (25)
  1. VEDOLIZUMAB [Suspect]
     Active Substance: VEDOLIZUMAB
     Indication: Colitis ulcerative
     Dosage: 300 MILLIGRAM
     Route: 042
     Dates: start: 20220309
  2. BIFIDOBACTERIUM ANIMALIS LACTIS [Concomitant]
     Active Substance: BIFIDOBACTERIUM ANIMALIS LACTIS
     Indication: Inflammatory bowel disease
     Dosage: 0.84 GRAM, BID
     Route: 048
     Dates: start: 20220303, end: 20220312
  3. BIFIDOBACTERIUM ANIMALIS LACTIS [Concomitant]
     Active Substance: BIFIDOBACTERIUM ANIMALIS LACTIS
     Dosage: 0.84 GRAM, BID
     Route: 048
     Dates: start: 20220322, end: 20220430
  4. BIFIDOBACTERIUM ANIMALIS LACTIS [Concomitant]
     Active Substance: BIFIDOBACTERIUM ANIMALIS LACTIS
     Dosage: 0.84 GRAM, BID
     Route: 048
     Dates: start: 20220616, end: 20220624
  5. CALCIUM CARBONATE\CHOLECALCIFEROL [Concomitant]
     Active Substance: CALCIUM CARBONATE\CHOLECALCIFEROL
     Indication: Inflammatory bowel disease
     Dosage: 0.6 GRAM, QD
     Route: 048
     Dates: start: 20220304, end: 20220318
  6. CALCIUM CARBONATE\CHOLECALCIFEROL [Concomitant]
     Active Substance: CALCIUM CARBONATE\CHOLECALCIFEROL
     Dosage: 0.6 GRAM, QD
     Route: 048
     Dates: start: 20220422, end: 20220430
  7. CALCIUM CARBONATE\CHOLECALCIFEROL [Concomitant]
     Active Substance: CALCIUM CARBONATE\CHOLECALCIFEROL
     Dosage: 0.6 GRAM, QD
     Route: 048
     Dates: start: 20220616, end: 20220624
  8. MESALAMINE [Concomitant]
     Active Substance: MESALAMINE
     Indication: Inflammatory bowel disease
     Dosage: 1000 MILLIGRAM, QID
     Route: 048
     Dates: start: 20220304, end: 20220318
  9. MESALAMINE [Concomitant]
     Active Substance: MESALAMINE
     Dosage: 1000 MILLIGRAM, QID
     Route: 048
     Dates: start: 20220331, end: 20220413
  10. MESALAMINE [Concomitant]
     Active Substance: MESALAMINE
     Dosage: 1000 MILLIGRAM, QID
     Route: 048
     Dates: start: 20220421, end: 20220505
  11. MESALAMINE [Concomitant]
     Active Substance: MESALAMINE
     Dosage: 500 MILLIGRAM, QID
     Route: 048
     Dates: start: 20220616, end: 20220624
  12. ESOMEPRAZOLE MAGNESIUM [Concomitant]
     Active Substance: ESOMEPRAZOLE MAGNESIUM
     Indication: Chronic gastritis
     Dosage: 20 MILLIGRAM, QD
     Route: 048
     Dates: start: 20220306, end: 20220318
  13. ESOMEPRAZOLE MAGNESIUM [Concomitant]
     Active Substance: ESOMEPRAZOLE MAGNESIUM
     Dosage: 20 MILLIGRAM, QD
     Route: 048
     Dates: start: 20220331, end: 20220413
  14. ESOMEPRAZOLE MAGNESIUM [Concomitant]
     Active Substance: ESOMEPRAZOLE MAGNESIUM
     Dosage: 20 MILLIGRAM, QD
     Route: 048
     Dates: start: 20220421, end: 20220526
  15. ESOMEPRAZOLE MAGNESIUM [Concomitant]
     Active Substance: ESOMEPRAZOLE MAGNESIUM
     Dosage: 20 MILLIGRAM, QD
     Route: 048
     Dates: start: 20220616, end: 20220624
  16. ISONIAZID [Concomitant]
     Active Substance: ISONIAZID
     Indication: Intestinal tuberculosis
     Dosage: 0.25 GRAM, QD
     Route: 048
     Dates: start: 20220306, end: 20220318
  17. ISONIAZID [Concomitant]
     Active Substance: ISONIAZID
     Dosage: 0.25 GRAM, QD
     Route: 048
     Dates: start: 20220331, end: 20220413
  18. ISONIAZID [Concomitant]
     Active Substance: ISONIAZID
     Dosage: 0.25 GRAM, QD
     Route: 048
     Dates: start: 20220421, end: 20220526
  19. ISONIAZID [Concomitant]
     Active Substance: ISONIAZID
     Dosage: 0.25 GRAM, QD
     Route: 048
     Dates: start: 20220616, end: 20220624
  20. RIFAMPIN [Concomitant]
     Active Substance: RIFAMPIN
     Indication: Epstein-Barr virus infection
     Dosage: 0.45 GRAM, QD
     Route: 048
     Dates: start: 20220306, end: 20220318
  21. RIFAMPIN [Concomitant]
     Active Substance: RIFAMPIN
     Dosage: 0.45 GRAM, QD
     Route: 048
     Dates: start: 20220331, end: 20220413
  22. RIFAMPIN [Concomitant]
     Active Substance: RIFAMPIN
     Dosage: 0.45 GRAM, QD
     Route: 048
     Dates: start: 20220512, end: 20220526
  23. RIFAMPIN [Concomitant]
     Active Substance: RIFAMPIN
     Dosage: 0.45 GRAM, QD
     Route: 048
     Dates: start: 20220616, end: 20220624
  24. VALACYCLOVIR HYDROCHLORIDE [Concomitant]
     Active Substance: VALACYCLOVIR HYDROCHLORIDE
     Indication: Epstein-Barr virus infection
     Dosage: 20 MILLIGRAM, BID
     Route: 048
     Dates: start: 20220309, end: 20220318
  25. VALACYCLOVIR HYDROCHLORIDE [Concomitant]
     Active Substance: VALACYCLOVIR HYDROCHLORIDE
     Dosage: 0.3 GRAM, BID
     Route: 048
     Dates: start: 20220331, end: 20220406

REACTIONS (1)
  - Lung neoplasm malignant [Recovered/Resolved]

NARRATIVE: CASE EVENT DATE: 20220310
